FAERS Safety Report 8437808-1 (Version None)
Quarter: 2012Q2

REPORT INFORMATION
  Report Type: 
  Country: None (occurrence: None)
  Receive Date: 20120614
  Receipt Date: 20120510
  Transmission Date: 20120825
  Serious: No
  Sender: FDA-Public Use
  Company Number: US-AMGEN-USASP2012029835

PATIENT
  Age: 67 Year
  Sex: Female

DRUGS (7)
  1. LASIX [Concomitant]
  2. COREG [Concomitant]
  3. POTASSIUM ACETATE [Concomitant]
  4. LIPITOR [Concomitant]
  5. PROLIA [Suspect]
     Indication: OSTEOPOROSIS POSTMENOPAUSAL
     Dosage: 60 MG, Q6MO
     Dates: start: 20120430
  6. EXFORGE [Concomitant]
  7. INSULIN [Concomitant]

REACTIONS (1)
  - VIRAL INFECTION [None]
